FAERS Safety Report 9772212 (Version 3)
Quarter: 2013Q4

REPORT INFORMATION
  Report Type: Report from Study
  Country: US (occurrence: US)
  Receive Date: 20131219
  Receipt Date: 20131223
  Transmission Date: 20140711
  Serious: Yes (Hospitalization, Other)
  Sender: FDA-Public Use
  Company Number: US-TEVA-450249USA

PATIENT
  Age: 22 Year
  Sex: Female
  Weight: 74 kg

DRUGS (1)
  1. NUVIGIL [Suspect]
     Indication: NARCOLEPSY
     Dosage: 250 MILLIGRAM DAILY;
     Dates: start: 2013, end: 20131209

REACTIONS (3)
  - Abortion missed [Unknown]
  - Musculoskeletal pain [Unknown]
  - Pneumonia [Unknown]
